FAERS Safety Report 6593954-9 (Version None)
Quarter: 2010Q1

REPORT INFORMATION
  Report Type: 
  Country: None (occurrence: None)
  Receive Date: 20100222
  Receipt Date: 20100219
  Transmission Date: 20100710
  Serious: Yes (Death, Life-Threatening)
  Sender: FDA-Public Use
  Company Number: DE-JNJFOC-20100207778

PATIENT
  Age: 77 Year
  Sex: Male

DRUGS (8)
  1. RISPERDAL [Suspect]
     Indication: DRUG USE FOR UNKNOWN INDICATION
     Route: 048
     Dates: start: 20091002, end: 20091231
  2. RISPERDAL [Suspect]
     Route: 048
     Dates: start: 20091002, end: 20091231
  3. TREVILOR [Concomitant]
     Route: 048
     Dates: start: 20091105, end: 20091231
  4. TREVILOR [Concomitant]
     Route: 048
     Dates: start: 20091105, end: 20091231
  5. TREVILOR [Concomitant]
     Route: 048
     Dates: start: 20091105, end: 20091231
  6. TREVILOR [Concomitant]
     Route: 048
     Dates: start: 20091105, end: 20091231
  7. TREVILOR [Concomitant]
     Route: 048
     Dates: start: 20091105, end: 20091231
  8. VOTUM [Concomitant]
     Route: 048
     Dates: start: 20090923, end: 20091231

REACTIONS (1)
  - PULMONARY EMBOLISM [None]
